FAERS Safety Report 15897874 (Version 1)
Quarter: 2019Q1

REPORT INFORMATION
  Report Type: Report from Study
  Country: US (occurrence: US)
  Receive Date: 20190201
  Receipt Date: 20190201
  Transmission Date: 20190417
  Serious: Yes (Hospitalization, Other)
  Sender: FDA-Public Use
  Company Number: US-ROCHE-1813449

PATIENT
  Sex: Male

DRUGS (2)
  1. ALTEPLASE. [Suspect]
     Active Substance: ALTEPLASE
     Indication: CEREBRAL HAEMORRHAGE
     Route: 065
  2. ALTEPLASE. [Suspect]
     Active Substance: ALTEPLASE
     Indication: INTRAVENTRICULAR HAEMORRHAGE

REACTIONS (8)
  - Cerebral ischaemia [Unknown]
  - Acute coronary syndrome [Unknown]
  - Sepsis [Recovered/Resolved]
  - Lethargy [Unknown]
  - Pneumonia [Unknown]
  - Subdural haematoma [Recovered/Resolved]
  - Deep vein thrombosis [Unknown]
  - Hypotension [Recovered/Resolved]

NARRATIVE: CASE EVENT DATE: 20160418
